FAERS Safety Report 9189349 (Version 2)
Quarter: 2013Q3

REPORT INFORMATION
  Report Type: Spontaneous
  Country: FR (occurrence: FR)
  Receive Date: 20130326
  Receipt Date: 20130702
  Transmission Date: 20140515
  Serious: Yes (Other)
  Sender: FDA-Public Use
  Company Number: PHHY2013FR027703

PATIENT
  Age: 27 Year
  Sex: Female

DRUGS (7)
  1. EXJADE [Suspect]
     Indication: IRON OVERLOAD
     Dosage: 1 DF, QID (500 MG)
     Route: 048
     Dates: end: 20130302
  2. QLAIRA [Interacting]
     Indication: CONTRACEPTION
     Dosage: UNK UKN, UNK
     Route: 048
  3. ORACILLIN [Concomitant]
     Dosage: 1 MIU, UNK
     Route: 048
     Dates: end: 20130302
  4. SIKLOS [Concomitant]
     Indication: SICKLE CELL ANAEMIA
     Dosage: 1 DF, BID
     Dates: end: 20130228
  5. FOLIC ACID [Concomitant]
     Dosage: 5 MG, UNK
     Route: 048
     Dates: end: 20130302
  6. IXPRIM [Concomitant]
     Dosage: 2 DF, TID
     Route: 048
     Dates: end: 20130302
  7. TRANSFUSIONS [Concomitant]

REACTIONS (2)
  - Pregnancy on oral contraceptive [Recovered/Resolved with Sequelae]
  - Drug interaction [Recovered/Resolved with Sequelae]
